FAERS Safety Report 16879350 (Version 1)
Quarter: 2019Q4

REPORT INFORMATION
  Report Type: Spontaneous
  Country: CN (occurrence: CN)
  Receive Date: 20191003
  Receipt Date: 20191003
  Transmission Date: 20200122
  Serious: Yes (Hospitalization, Other)
  Sender: FDA-Public Use
  Company Number: CN-BAXTER-2019BAX019036

PATIENT
  Age: 65 Year
  Sex: Male
  Weight: 61 kg

DRUGS (2)
  1. 20% MANNITOL INJECTION [Suspect]
     Active Substance: MANNITOL
     Indication: CEREBRAL OEDEMA MANAGEMENT
  2. 20% MANNITOL INJECTION [Suspect]
     Active Substance: MANNITOL
     Indication: CEREBRAL HAEMORRHAGE
     Route: 041
     Dates: start: 20190906, end: 20190913

REACTIONS (3)
  - Dysarthria [Recovered/Resolved]
  - Muscular weakness [Recovered/Resolved]
  - Renal failure [Unknown]

NARRATIVE: CASE EVENT DATE: 20190912
